FAERS Safety Report 4989537-4 (Version None)
Quarter: 2006Q2

REPORT INFORMATION
  Report Type: 
  Country: None (occurrence: None)
  Receive Date: 20060502
  Receipt Date: 20060127
  Transmission Date: 20061013
  Serious: Yes (Hospitalization)
  Sender: FDA-Public Use
  Company Number: US-MERCK-0601USA03401

PATIENT
  Age: 75 Year
  Sex: Male
  Weight: 73 kg

DRUGS (1)
  1. VIOXX [Suspect]
     Indication: ARTHRITIS
     Route: 048
     Dates: start: 20030101, end: 20040204

REACTIONS (4)
  - HYPERTENSION [None]
  - ISCHAEMIC STROKE [None]
  - TUBERCULIN TEST POSITIVE [None]
  - VISION BLURRED [None]
